FAERS Safety Report 16581003 (Version 1)
Quarter: 2019Q3

REPORT INFORMATION
  Report Type: Spontaneous
  Country: ES (occurrence: ES)
  Receive Date: 20190716
  Receipt Date: 20190716
  Transmission Date: 20191004
  Serious: Yes (Other)
  Sender: FDA-Public Use
  Company Number: ES-TEVA-2019-ES-1077894

PATIENT
  Age: 26 Year
  Sex: Female

DRUGS (5)
  1. CISPLATIN. [Suspect]
     Active Substance: CISPLATIN
     Indication: OVARIAN CANCER
     Dosage: FOR 5 DAYS IN A CYCLE CYCLE FOR 5 CYCLE
     Route: 065
  2. ETOPOSIDE. [Suspect]
     Active Substance: ETOPOSIDE
     Indication: OVARIAN CANCER
     Dosage: FOR 5 DAYS IN A CYCLE FOR 5 CYCLE
     Route: 065
  3. BLEOMYCIN [Suspect]
     Active Substance: BLEOMYCIN SULFATE
     Indication: OVARIAN CANCER
     Dosage: FOR 3 DAYS IN THE FIRST 4 CYCLES AND A SINGLE DOSE IN THE LAST CYCLE (390 MG/M2)
     Route: 065
  4. DECAPEPTYL [Concomitant]
     Indication: PROPHYLAXIS
     Route: 065
  5. ANDROCUR [Concomitant]
     Active Substance: CYPROTERONE ACETATE
     Indication: PROPHYLAXIS
     Route: 065

REACTIONS (1)
  - Tooth resorption [Recovering/Resolving]
